FAERS Safety Report 12518442 (Version 1)
Quarter: 2016Q2

REPORT INFORMATION
  Report Type: Report from Study
  Country: CA (occurrence: CA)
  Receive Date: 20160630
  Receipt Date: 20160630
  Transmission Date: 20160815
  Serious: Yes (Other)
  Sender: FDA-Public Use
  Company Number: CA-JNJFOC-20160619825

PATIENT
  Age: 33 Year
  Sex: Female

DRUGS (3)
  1. ROBAXACET [Concomitant]
     Active Substance: ACETAMINOPHEN\METHOCARBAMOL
     Route: 065
  2. CELEBREX [Concomitant]
     Active Substance: CELECOXIB
     Route: 065
  3. REMICADE [Suspect]
     Active Substance: INFLIXIMAB
     Indication: PSORIATIC ARTHROPATHY
     Route: 042
     Dates: start: 20160121

REACTIONS (4)
  - Parosmia [Not Recovered/Not Resolved]
  - Dysgeusia [Not Recovered/Not Resolved]
  - Brain scan abnormal [Not Recovered/Not Resolved]
  - Arterial disorder [Not Recovered/Not Resolved]

NARRATIVE: CASE EVENT DATE: 201606
